FAERS Safety Report 7481514-7 (Version None)
Quarter: 2011Q2

REPORT INFORMATION
  Report Type: 
  Country: None (occurrence: None)
  Receive Date: 20110516
  Receipt Date: 20110510
  Transmission Date: 20111010
  Serious: Yes (Hospitalization)
  Sender: FDA-Public Use
  Company Number: TR-SANOFI-AVENTIS-2011SA029086

PATIENT
  Age: 56 Year
  Sex: Male

DRUGS (8)
  1. DOCETAXEL [Suspect]
     Indication: SQUAMOUS CELL CARCINOMA
     Route: 065
  2. DOCETAXEL [Suspect]
     Route: 065
  3. DOCETAXEL [Suspect]
     Route: 065
  4. CARBOPLATIN [Concomitant]
     Route: 065
  5. DOCETAXEL [Suspect]
     Route: 065
  6. CARBOPLATIN [Concomitant]
     Route: 065
  7. CARBOPLATIN [Concomitant]
     Route: 065
  8. METHYLPEDNISOLONE SODIUM SUCCINATE [Concomitant]
     Dosage: STARTED ONE DAY PRIOR TO THE CHEMOTHERAPY.
     Route: 065

REACTIONS (5)
  - ECTROPION [None]
  - ERYTHEMA [None]
  - SKIN DISORDER [None]
  - MADAROSIS [None]
  - SKIN MACERATION [None]
